FAERS Safety Report 9913756 (Version 1)
Quarter: 2014Q1

REPORT INFORMATION
  Report Type: Spontaneous
  Country: FR (occurrence: FR)
  Receive Date: 20140220
  Receipt Date: 20140220
  Transmission Date: 20141002
  Serious: Yes (Other)
  Sender: FDA-Public Use
  Company Number: FR-ASTRAZENECA-2014SE11493

PATIENT
  Age: 63 Year
  Sex: Male

DRUGS (6)
  1. BRILIQUE [Suspect]
     Indication: ACUTE CORONARY SYNDROME
     Dosage: DAILY
     Route: 048
     Dates: start: 201306
  2. KARDEGIC [Concomitant]
     Indication: ACUTE CORONARY SYNDROME
  3. BISOPROLOL [Concomitant]
     Indication: ACUTE CORONARY SYNDROME
  4. CORDARONE [Concomitant]
  5. INEXIUM [Concomitant]
  6. CRESTOR [Concomitant]
     Route: 048

REACTIONS (2)
  - General physical health deterioration [Recovered/Resolved]
  - Haematoma [Recovered/Resolved]
